FAERS Safety Report 9658595 (Version 2)
Quarter: 2013Q4

REPORT INFORMATION
  Report Type: Spontaneous
  Country: US (occurrence: US)
  Receive Date: 20131030
  Receipt Date: 20131030
  Transmission Date: 20140711
  Serious: No
  Sender: FDA-Public Use
  Company Number: US-PURDUE-USA-2010-0056582

PATIENT
  Age: 69 Year
  Sex: Female

DRUGS (1)
  1. OXYCONTIN (NDA 22-272) [Suspect]
     Indication: BACK PAIN
     Dosage: 30 MG, BID
     Dates: start: 201008, end: 20101022

REACTIONS (3)
  - Pain [Recovered/Resolved]
  - Medication residue present [Recovered/Resolved]
  - Drug ineffective [Recovered/Resolved]
